FAERS Safety Report 8720891 (Version 3)
Quarter: 2012Q4

REPORT INFORMATION
  Report Type: 
  Country: US (occurrence: US)
  Receive Date: 20120813
  Receipt Date: 20120926
  Transmission Date: 20130627
  Serious: Yes (Hospitalization)
  Sender: FDA-Public Use
  Company Number: US-GLAXOSMITHKLINE-A0989061A

PATIENT
  Age: 60 Year
  Sex: Female

DRUGS (2)
  1. TYKERB [Suspect]
     Indication: BREAST CANCER
     Dosage: 1000MG Per day
     Route: 065
     Dates: start: 20120802
  2. IMODIUM [Concomitant]
     Indication: DIARRHOEA
     Route: 048

REACTIONS (12)
  - Hospitalisation [Unknown]
  - Dry mouth [Unknown]
  - Stomatitis [Unknown]
  - Muscle spasms [Unknown]
  - Fatigue [Unknown]
  - Nausea [Unknown]
  - Abdominal pain upper [Unknown]
  - Hypoaesthesia [Unknown]
  - Erythema [Unknown]
  - Pruritus [Unknown]
  - Lip blister [Recovered/Resolved]
  - Diarrhoea [Unknown]
